FAERS Safety Report 14246622 (Version 1)
Quarter: 2017Q4

REPORT INFORMATION
  Report Type: Spontaneous
  Country: US (occurrence: US)
  Receive Date: 20171201
  Receipt Date: 20171201
  Transmission Date: 20180321
  Serious: No
  Sender: FDA-Public Use
  Company Number: None

PATIENT
  Age: 58 Year
  Sex: Male
  Weight: 95.85 kg

DRUGS (3)
  1. AUROBIBDOHYDROCODONE BITARTRATE AND ACETAMINOPHEN TABLET [Suspect]
     Active Substance: ACETAMINOPHEN\HYDROCODONE BITARTRATE
     Indication: DYSTONIA
     Dosage: ?          QUANTITY:1 TABLET(S);?
     Route: 048
     Dates: start: 20171115, end: 20171201
  2. HYDROCODONE BITARTRATE AND ACETAMINOPHEN [Concomitant]
     Active Substance: ACETAMINOPHEN\HYDROCODONE BITARTRATE
  3. CLARITIN [Concomitant]
     Active Substance: LORATADINE

REACTIONS (4)
  - Drug ineffective [None]
  - Faeces soft [None]
  - Product substitution issue [None]
  - Blood pressure increased [None]
